FAERS Safety Report 22218468 (Version 1)
Quarter: 2023Q2

REPORT INFORMATION
  Report Type: Spontaneous
  Country: US (occurrence: None)
  Receive Date: 20230417
  Receipt Date: 20230417
  Transmission Date: 20230721
  Serious: No
  Sender: FDA-Public Use
  Company Number: US-Eisai Medical Research-EC-2023-135638

PATIENT
  Sex: Female

DRUGS (3)
  1. RABEPRAZOLE SODIUM [Suspect]
     Active Substance: RABEPRAZOLE SODIUM
     Indication: Gastrooesophageal reflux disease
     Dosage: BRAND ACIPHEX (DOSE AND FREQUENCY UNKNOWN)
     Route: 048
  2. RABEPRAZOLE SODIUM [Suspect]
     Active Substance: RABEPRAZOLE SODIUM
     Dosage: EISAI PARIT FROM INDIA (DOSE AND FREQUENCY UNKNOWN)
     Route: 048
  3. RABEPRAZOLE SODIUM [Suspect]
     Active Substance: RABEPRAZOLE SODIUM
     Dosage: PARIET FROM AUSTRALIA (DOSE AND FREQUENCY UNKNOWN) - MANUFACTURER UNKNOWN
     Route: 048

REACTIONS (1)
  - Drug ineffective [Unknown]
